FAERS Safety Report 13026686 (Version 5)
Quarter: 2017Q2

REPORT INFORMATION
  Report Type: Spontaneous
  Country: US (occurrence: US)
  Receive Date: 20161214
  Receipt Date: 20170411
  Transmission Date: 20170830
  Serious: Yes (Life-Threatening, Hospitalization)
  Sender: FDA-Public Use
  Company Number: US-JNJFOC-20161205125

PATIENT
  Sex: Male
  Weight: 163 kg

DRUGS (10)
  1. ADVAIR HFA [Concomitant]
     Active Substance: FLUTICASONE PROPIONATE\SALMETEROL XINAFOATE
     Indication: PRODUCT USED FOR UNKNOWN INDICATION
     Dosage: 250/50 UG
  2. COENZYME Q10 [Concomitant]
     Active Substance: UBIDECARENONE
     Indication: PRODUCT USED FOR UNKNOWN INDICATION
  3. POMALIDOMIDE [Concomitant]
     Active Substance: POMALIDOMIDE
     Indication: PRODUCT USED FOR UNKNOWN INDICATION
  4. ACYCLOVIR. [Concomitant]
     Active Substance: ACYCLOVIR
     Indication: ANTIVIRAL PROPHYLAXIS
  5. DEXAMETHASONE. [Concomitant]
     Active Substance: DEXAMETHASONE
     Indication: IMMUNOSUPPRESSION
     Route: 048
  6. VITAMINS D3 [Concomitant]
     Indication: PRODUCT USED FOR UNKNOWN INDICATION
  7. ROSUVASTATIN. [Concomitant]
     Active Substance: ROSUVASTATIN
     Indication: PRODUCT USED FOR UNKNOWN INDICATION
  8. DARZALEX [Suspect]
     Active Substance: DARATUMUMAB
     Indication: PLASMACYTOSIS
     Route: 042
     Dates: start: 20160922
  9. DARZALEX [Suspect]
     Active Substance: DARATUMUMAB
     Indication: PLASMA CELL MYELOMA
     Route: 042
     Dates: start: 20160922
  10. ASPIRIN. [Concomitant]
     Active Substance: ASPIRIN
     Indication: CARDIOVASCULAR EVENT PROPHYLAXIS
     Route: 065

REACTIONS (16)
  - Infusion related reaction [Recovered/Resolved]
  - Wheezing [Unknown]
  - Pneumonia [Unknown]
  - Drug dose omission [Unknown]
  - Cough [Unknown]
  - Hypersensitivity [Recovered/Resolved]
  - Ulcer [Unknown]
  - Product lot number issue [Recovering/Resolving]
  - Chest discomfort [Unknown]
  - Pyrexia [Unknown]
  - Leukopenia [Unknown]
  - Chills [Unknown]
  - Hypoxia [Unknown]
  - Fatigue [Unknown]
  - Plasmacytoma [Unknown]
  - Dyspnoea [Unknown]

NARRATIVE: CASE EVENT DATE: 2016
